FAERS Safety Report 6216131-X (Version None)
Quarter: 2009Q2

REPORT INFORMATION
  Report Type: 
  Country: None (occurrence: None)
  Receive Date: 20090605
  Receipt Date: 20090526
  Transmission Date: 20091009
  Serious: Yes (Other)
  Sender: FDA-Public Use
  Company Number: FR-JNJFOC-20050505569

PATIENT
  Age: 35 Year
  Sex: Female

DRUGS (3)
  1. INFLIXIMAB [Suspect]
     Indication: SPONDYLOARTHROPATHY
     Route: 042
  2. METHOTREXATE [Concomitant]
  3. LAMIVUDINE [Concomitant]

REACTIONS (3)
  - CHRONIC HEPATITIS [None]
  - PUPILLARY DISORDER [None]
  - THERAPEUTIC RESPONSE DECREASED [None]
